FAERS Safety Report 7783817-5 (Version None)
Quarter: 2011Q3

REPORT INFORMATION
  Report Type: 
  Country: None (occurrence: None)
  Receive Date: 20110928
  Receipt Date: 20110919
  Transmission Date: 20111222
  Serious: Yes (Other)
  Sender: FDA-Public Use
  Company Number: US-BAYER-200940910NA

PATIENT
  Age: 22 Year
  Sex: Male
  Weight: 68.027 kg

DRUGS (7)
  1. CARVEDILOL [Concomitant]
     Dosage: 12.5 MG, BID
     Route: 048
  2. PLAVIX [Concomitant]
     Dosage: 75 MG, QD
     Route: 048
  3. PENTAMIDINE [Concomitant]
  4. TRASYLOL [Suspect]
     Indication: CORONARY ARTERY BYPASS
     Dosage: UNK
     Route: 042
     Dates: start: 20060610
  5. ACETYLSALICYLIC ACID SRT [Concomitant]
     Dosage: 81 MG, QD
     Route: 048
  6. SYNTHROID [Concomitant]
     Dosage: 50 MCG/24HR, UNK
     Route: 048
  7. SENSIPAR [Concomitant]
     Dosage: 30 MG, UNK
     Route: 048

REACTIONS (11)
  - DEPRESSION [None]
  - ANXIETY [None]
  - FEAR [None]
  - RENAL INJURY [None]
  - PAIN [None]
  - ANHEDONIA [None]
  - INJURY [None]
  - UNEVALUABLE EVENT [None]
  - DISABILITY [None]
  - MULTI-ORGAN FAILURE [None]
  - RENAL FAILURE [None]
